FAERS Safety Report 20855344 (Version 1)
Quarter: 2022Q2

REPORT INFORMATION
  Report Type: Report from Study
  Country: US (occurrence: US)
  Receive Date: 20220520
  Receipt Date: 20220520
  Transmission Date: 20220721
  Serious: No
  Sender: FDA-Public Use
  Company Number: US-EMERGENT BIOSOLUTIONS,-22000068

PATIENT
  Age: 55 Year
  Sex: Female

DRUGS (2)
  1. NARCAN [Suspect]
     Active Substance: NALOXONE HYDROCHLORIDE
     Indication: Clinical trial participant
     Dosage: DOSE 1
     Route: 045
     Dates: start: 20220414, end: 20220414
  2. NARCAN [Suspect]
     Active Substance: NALOXONE HYDROCHLORIDE
     Dosage: DOSE 2
     Route: 045
     Dates: start: 20220414, end: 20220414

REACTIONS (2)
  - Nasal discomfort [Recovered/Resolved]
  - Nasal discomfort [Recovered/Resolved]

NARRATIVE: CASE EVENT DATE: 20220412
